FAERS Safety Report 8493598-8 (Version None)
Quarter: 2012Q3

REPORT INFORMATION
  Report Type: 
  Country: None (occurrence: None)
  Receive Date: 20120706
  Receipt Date: 20120629
  Transmission Date: 20120928
  Serious: Yes (Hospitalization)
  Sender: FDA-Public Use
  Company Number: DK-PFIZER INC-2012157604

PATIENT
  Age: 48 Year
  Sex: Female
  Weight: 56 kg

DRUGS (1)
  1. SULFASALAZINE [Suspect]
     Indication: ARTHRITIS
     Dosage: ^INCREASING TO 500 MG 2 X2, STRENGHT: 500 MG^
     Route: 048
     Dates: start: 20120118, end: 20120217

REACTIONS (3)
  - HEPATIC FUNCTION ABNORMAL [None]
  - LYMPHADENITIS [None]
  - RASH GENERALISED [None]
